FAERS Safety Report 18249850 (Version 8)
Quarter: 2021Q3

REPORT INFORMATION
  Report Type: Spontaneous
  Country: DE (occurrence: DE)
  Receive Date: 20200910
  Receipt Date: 20210922
  Transmission Date: 20211014
  Serious: Yes (Life-Threatening, Hospitalization, Other)
  Sender: FDA-Public Use
  Company Number: NVSC2020DE243738

PATIENT
  Age: 86 Year
  Sex: Male
  Weight: 118 kg

DRUGS (4)
  1. SPIRONOLACTONE. [Suspect]
     Active Substance: SPIRONOLACTONE
     Indication: HYPERTENSION
     Dosage: UNK
     Route: 048
     Dates: end: 20200507
  2. BISOPROLOL [Suspect]
     Active Substance: BISOPROLOL
     Indication: HYPERTENSION
     Dosage: UNK
     Route: 048
     Dates: end: 20200507
  3. VITAMIN B CO [Concomitant]
     Indication: PRODUCT USED FOR UNKNOWN INDICATION
     Dosage: UNK
     Route: 065
  4. ADENOSINE. [Suspect]
     Active Substance: ADENOSINE
     Indication: PRODUCT USED FOR UNKNOWN INDICATION
     Dosage: UNK
     Route: 065

REACTIONS (22)
  - Atrial fibrillation [Recovered/Resolved]
  - Bradyarrhythmia [Recovered/Resolved]
  - Dizziness [Recovered/Resolved]
  - Hepatic cirrhosis [Recovering/Resolving]
  - Gait disturbance [Not Recovered/Not Resolved]
  - Asthenia [Not Recovered/Not Resolved]
  - General physical health deterioration [Not Recovered/Not Resolved]
  - Atrial fibrillation [Recovered/Resolved]
  - Urosepsis [Not Recovered/Not Resolved]
  - Fall [Not Recovered/Not Resolved]
  - Pruritus [Not Recovered/Not Resolved]
  - Pleural effusion [Not Recovered/Not Resolved]
  - Spinal stenosis [Not Recovered/Not Resolved]
  - Rib fracture [Not Recovered/Not Resolved]
  - Hyperkalaemia [Recovered/Resolved]
  - Cardiac disorder [Recovering/Resolving]
  - Cardiac failure [Not Recovered/Not Resolved]
  - Inflammation [Not Recovered/Not Resolved]
  - Atrioventricular block [Not Recovered/Not Resolved]
  - Head injury [Recovered/Resolved]
  - Fall [Recovered/Resolved]
  - Urinary incontinence [Not Recovered/Not Resolved]

NARRATIVE: CASE EVENT DATE: 20200313
